FAERS Safety Report 5156962-0 (Version None)
Quarter: 2006Q4

REPORT INFORMATION
  Report Type: 
  Country: None (occurrence: None)
  Receive Date: 20061124
  Receipt Date: 20061113
  Transmission Date: 20070319
  Serious: Yes (Other)
  Sender: FDA-Public Use
  Company Number: US-ROCHE-471010

PATIENT
  Age: 47 Year
  Sex: Male

DRUGS (3)
  1. KYTRIL [Suspect]
     Indication: VOMITING
     Dosage: FREQUENCY REPORTED AS ONCE
     Route: 065
     Dates: start: 20061022, end: 20061022
  2. PEG-INTRON [Suspect]
     Indication: HEPATITIS C
     Route: 058
     Dates: start: 20061007
  3. RIBASPHERE [Suspect]
     Indication: HEPATITIS C
     Route: 048
     Dates: start: 20061007

REACTIONS (5)
  - ABDOMINAL PAIN [None]
  - ARTHRALGIA [None]
  - DEHYDRATION [None]
  - NAUSEA [None]
  - VOMITING [None]
